FAERS Safety Report 8971302 (Version 1)
Quarter: 2012Q4

REPORT INFORMATION
  Report Type: Report from Study
  Country: CH (occurrence: CH)
  Receive Date: 20121218
  Receipt Date: 20121218
  Transmission Date: 20130627
  Serious: Yes (Hospitalization)
  Sender: FDA-Public Use
  Company Number: CH-ELI_LILLY_AND_COMPANY-CH201212003624

PATIENT
  Age: 62 Year
  Sex: Female
  Weight: 67.1 kg

DRUGS (5)
  1. PEMETREXED [Suspect]
     Indication: CHEMOTHERAPY
     Dosage: UNK
     Dates: start: 20051129
  2. UNSPECIFIED INGREDIENT [Suspect]
     Indication: ANAEMIA OF MALIGNANT DISEASE
     Dosage: 30000 u, weekly (1/W)
     Route: 058
     Dates: start: 20060201
  3. PREDNISONE [Concomitant]
     Dosage: 100 mg, UNK
     Dates: start: 20060110
  4. TOREM [Concomitant]
     Dosage: 20 mg, UNK
     Dates: start: 20060110
  5. NEXIUM [Concomitant]
     Dosage: 20 mg, UNK
     Dates: start: 20060301

REACTIONS (1)
  - Dyspnoea [Recovered/Resolved]
